FAERS Safety Report 16225476 (Version 1)
Quarter: 2019Q2

REPORT INFORMATION
  Report Type: Spontaneous
  Country: US (occurrence: US)
  Receive Date: 20190422
  Receipt Date: 20190422
  Transmission Date: 20190711
  Serious: No
  Sender: FDA-Public Use
  Company Number: US-009507513-1904USA007944

PATIENT
  Sex: Female

DRUGS (1)
  1. JANUVIA [Suspect]
     Active Substance: SITAGLIPTIN PHOSPHATE
     Dosage: 1 X 100 MILLIGRAM TWICE WEEKLY
     Route: 048

REACTIONS (3)
  - Vomiting [Unknown]
  - Inappropriate schedule of product administration [Unknown]
  - Malaise [Unknown]
